FAERS Safety Report 6028929-1 (Version None)
Quarter: 2008Q4

REPORT INFORMATION
  Report Type: 
  Country: None (occurrence: None)
  Receive Date: 20081222
  Receipt Date: 20081103
  Transmission Date: 20090506
  Serious: No
  Sender: FDA-Public Use
  Company Number: ALL1-2008-03195

PATIENT
  Age: 9 Year
  Sex: Female
  Weight: 17.7 kg

DRUGS (6)
  1. VYVANSE [Suspect]
     Indication: ATTENTION DEFICIT/HYPERACTIVITY DISORDER
     Dosage: 30 MG, 1X/DAY:QD, ORAL : 1/3 OF 30MG CAPSULE, 1X/DAY:QD, ORAL : 20 MG, 1/XDAY:QD, ORAL
     Route: 048
     Dates: start: 20071201, end: 20071201
  2. VYVANSE [Suspect]
     Indication: ATTENTION DEFICIT/HYPERACTIVITY DISORDER
     Dosage: 30 MG, 1X/DAY:QD, ORAL : 1/3 OF 30MG CAPSULE, 1X/DAY:QD, ORAL : 20 MG, 1/XDAY:QD, ORAL
     Route: 048
     Dates: start: 20071201, end: 20080901
  3. VYVANSE [Suspect]
     Indication: ATTENTION DEFICIT/HYPERACTIVITY DISORDER
     Dosage: 30 MG, 1X/DAY:QD, ORAL : 1/3 OF 30MG CAPSULE, 1X/DAY:QD, ORAL : 20 MG, 1/XDAY:QD, ORAL
     Route: 048
     Dates: start: 20080901
  4. NASONEX [Concomitant]
  5. BENADRYL [Concomitant]
  6. EPIPEN [Concomitant]

REACTIONS (6)
  - CONDITION AGGRAVATED [None]
  - DECREASED APPETITE [None]
  - DRUG EFFECT INCREASED [None]
  - INCORRECT DOSE ADMINISTERED [None]
  - INTENTIONAL DRUG MISUSE [None]
  - PRODUCT QUALITY ISSUE [None]
